FAERS Safety Report 4643897-2 (Version None)
Quarter: 2005Q2

REPORT INFORMATION
  Report Type: 
  Country: None (occurrence: None)
  Receive Date: 20050425
  Receipt Date: 20050418
  Transmission Date: 20051028
  Serious: Yes (Hospitalization)
  Sender: FDA-Public Use
  Company Number: US-BRISTOL-MYERS SQUIBB COMPANY-12938122

PATIENT
  Age: 58 Year
  Sex: Female

DRUGS (16)
  1. CETUXIMAB [Suspect]
     Indication: NON-SMALL CELL LUNG CANCER
     Dosage: 2ND COURSE, DOSE DELAYED/OMITTED. THERAPY START DATE 04-APR-05, DOSING 764 MG X 1, THEN 477 MG.
     Route: 042
     Dates: start: 20050411, end: 20050411
  2. CARBOPLATIN [Suspect]
     Indication: NON-SMALL CELL LUNG CANCER
     Dosage: 1ST COURSE
     Route: 042
     Dates: start: 20050404, end: 20050404
  3. TAXOL [Suspect]
     Indication: NON-SMALL CELL LUNG CANCER
     Dosage: 1ST COURSE.
     Route: 042
     Dates: start: 20050404, end: 20050404
  4. COUMADIN [Concomitant]
     Dates: start: 20040301
  5. DYAZIDE [Concomitant]
  6. M.V.I. [Concomitant]
  7. NORVASC [Concomitant]
  8. PROTONIX [Concomitant]
  9. TOPROL-XL [Concomitant]
  10. LESCOL [Concomitant]
  11. HYDROCODONE BITARTRATE [Concomitant]
  12. EXTRA STRENGTH TYLENOL [Concomitant]
  13. BENADRYL [Concomitant]
     Indication: PREMEDICATION
     Route: 042
     Dates: start: 20050404, end: 20050404
  14. DECADRON [Concomitant]
     Indication: PREMEDICATION
     Route: 042
     Dates: start: 20050404, end: 20050404
  15. DECADRON [Concomitant]
     Route: 048
     Dates: start: 20050403, end: 20050403
  16. CIMETIDINE [Concomitant]
     Indication: PREMEDICATION
     Route: 042
     Dates: start: 20050404, end: 20050404

REACTIONS (1)
  - DEEP VEIN THROMBOSIS [None]
